FAERS Safety Report 16200721 (Version 1)
Quarter: 2019Q2

REPORT INFORMATION
  Report Type: Spontaneous
  Country: JP (occurrence: JP)
  Receive Date: 20190416
  Receipt Date: 20190416
  Transmission Date: 20190711
  Serious: Yes (Other)
  Sender: FDA-Public Use
  Company Number: JP-ASTELLAS-2019US015190

PATIENT
  Sex: Female

DRUGS (3)
  1. ERLOTINIB [Suspect]
     Active Substance: ERLOTINIB
     Dosage: DOSE INTERVAL UNCERTAINTY
     Route: 048
  2. ERLOTINIB [Suspect]
     Active Substance: ERLOTINIB
     Indication: LUNG ADENOCARCINOMA
     Dosage: DOSE INTERVAL UNCERTAINTY
     Route: 048
     Dates: start: 2016
  3. ERLOTINIB [Suspect]
     Active Substance: ERLOTINIB
     Dosage: DOSE INTERVAL UNCERTAINTY
     Route: 048

REACTIONS (2)
  - Malignant neoplasm progression [Unknown]
  - Medication error [Unknown]

NARRATIVE: CASE EVENT DATE: 20190330
